FAERS Safety Report 4998562-9 (Version None)
Quarter: 2006Q2

REPORT INFORMATION
  Report Type: 
  Country: None (occurrence: None)
  Receive Date: 20060508
  Receipt Date: 20060310
  Transmission Date: 20061013
  Serious: Yes (Other)
  Sender: FDA-Public Use
  Company Number: S06-UKI-01761-01

PATIENT
  Age: 82 Year
  Sex: Male

DRUGS (5)
  1. MEMANTINE HCL [Suspect]
     Indication: DEMENTIA ALZHEIMER'S TYPE
  2. THIAMINE [Concomitant]
  3. CELEBREX [Concomitant]
  4. TOLTERODINE TARTRATE [Concomitant]
  5. AMOXICILLIN [Concomitant]

REACTIONS (2)
  - BLINDNESS [None]
  - OPHTHALMOPLEGIA [None]
